FAERS Safety Report 10312597 (Version 1)
Quarter: 2014Q3

REPORT INFORMATION
  Report Type: Spontaneous
  Country: IL (occurrence: None)
  Receive Date: 20140716
  Receipt Date: 20140716
  Transmission Date: 20150326
  Serious: Yes (Death, Other)
  Sender: FDA-Public Use
  Company Number: 2014STPI000316

PATIENT
  Age: 57 Year
  Sex: Male

DRUGS (5)
  1. VANCOMICINA (VANCOMYCIN HYDROCHLORIDE) [Concomitant]
  2. CARBAPENEMS [Concomitant]
     Active Substance: UNSPECIFIED INGREDIENT
  3. NOXAFIL [Concomitant]
     Active Substance: POSACONAZOLE
  4. ABELCET [Suspect]
     Active Substance: AMPHOTERICIN B\DIMYRISTOYLPHOSPHATIDYLCHOLINE, DL-\DIMYRISTOYLPHOSPHATIDYLGLYCEROL, DL-
     Indication: FUNGAL INFECTION
     Dates: start: 201310
  5. CHEMOTHERAPEUTICS [Concomitant]
     Active Substance: UNSPECIFIED INGREDIENT

REACTIONS (1)
  - Renal failure [None]
